FAERS Safety Report 8797110 (Version 1)
Quarter: 2012Q4

REPORT INFORMATION
  Report Type: 
  Country: US (occurrence: US)
  Receive Date: 20120919
  Receipt Date: 20120919
  Transmission Date: 20130627
  Serious: Yes (Death)
  Sender: FDA-Public Use
  Company Number: CHPA2012US019980

PATIENT
  Age: 85 Year
  Sex: Female

DRUGS (1)
  1. BENEFIBER W/ WHEAT DEXTRIN [Suspect]
     Dosage: Unk, Unk
     Route: 048
     Dates: end: 2006

REACTIONS (2)
  - Arterial occlusive disease [Fatal]
  - Death [Fatal]
